FAERS Safety Report 5680291-X (Version None)
Quarter: 2008Q1

REPORT INFORMATION
  Report Type: 
  Country: None (occurrence: None)
  Receive Date: 20080326
  Receipt Date: 20080317
  Transmission Date: 20080703
  Serious: Yes (Life-Threatening, Hospitalization)
  Sender: FDA-Public Use
  Company Number: DE-TEVA-167333ISR

PATIENT
  Sex: Male

DRUGS (6)
  1. CARBOPLATIN CONCENTRATE FOR INFUSION 10MG/ML [Suspect]
     Indication: BRONCHIAL CARCINOMA
     Route: 042
     Dates: start: 20080107, end: 20080124
  2. VINORELBINE [Concomitant]
     Dates: start: 20080107, end: 20080107
  3. VINORELBINE [Concomitant]
     Dates: start: 20080114, end: 20080114
  4. VINORELBINE [Concomitant]
     Dates: start: 20080124, end: 20080124
  5. ENOXAPARIN SODIUM [Concomitant]
  6. ACETYLSALICYLIC ACID SRT [Concomitant]

REACTIONS (1)
  - THROMBOCYTHAEMIA [None]
